FAERS Safety Report 17955523 (Version 1)
Quarter: 2020Q2

REPORT INFORMATION
  Report Type: Spontaneous
  Country: US (occurrence: US)
  Receive Date: 20200626
  Receipt Date: 20200626
  Transmission Date: 20200714
  Serious: No
  Sender: FDA-Public Use
  Company Number: None

PATIENT
  Sex: Female

DRUGS (1)
  1. LAMOTRIGINE. [Suspect]
     Active Substance: LAMOTRIGINE
     Indication: BRAIN OEDEMA
     Route: 048

REACTIONS (9)
  - Gingival swelling [None]
  - Stevens-Johnson syndrome [None]
  - Tongue erythema [None]
  - Gingival erythema [None]
  - Swollen tongue [None]
  - Glossodynia [None]
  - Hypersensitivity [None]
  - Therapy change [None]
  - Gingival pain [None]

NARRATIVE: CASE EVENT DATE: 20200422
